FAERS Safety Report 6992589-3 (Version None)
Quarter: 2010Q3

REPORT INFORMATION
  Report Type: 
  Country: None (occurrence: None)
  Receive Date: 20100917
  Receipt Date: 20100914
  Transmission Date: 20110219
  Serious: Yes (Other)
  Sender: FDA-Public Use
  Company Number: IT-ROCHE-726574

PATIENT
  Sex: Female

DRUGS (2)
  1. HERCEPTIN [Suspect]
     Indication: BREAST CANCER
     Dosage: DOSE, ROUTE, FORM: NOT PROVIDED, FREQUENCY: CYCLE.
     Route: 065
     Dates: start: 20100301
  2. PACLITAXEL [Concomitant]
     Indication: BREAST CANCER

REACTIONS (1)
  - CHOREOATHETOSIS [None]
